FAERS Safety Report 9938215 (Version 2)
Quarter: 2014Q1

REPORT INFORMATION
  Report Type: Spontaneous
  Country: US (occurrence: US)
  Receive Date: 20140303
  Receipt Date: 20140303
  Transmission Date: 20141002
  Serious: No
  Sender: FDA-Public Use
  Company Number: US-ABBVIE-12P-163-0989041-00

PATIENT
  Sex: Female

DRUGS (1)
  1. HUMIRA [Suspect]
     Indication: CROHN^S DISEASE

REACTIONS (6)
  - Injection site reaction [Unknown]
  - Headache [Unknown]
  - Crohn^s disease [Unknown]
  - Drug ineffective [Unknown]
  - Colon neoplasm [Not Recovered/Not Resolved]
  - Impaired healing [Not Recovered/Not Resolved]
